FAERS Safety Report 5578742-4 (Version None)
Quarter: 2007Q4

REPORT INFORMATION
  Report Type: 
  Country: None (occurrence: None)
  Receive Date: 20071227
  Receipt Date: 20071215
  Transmission Date: 20080405
  Serious: Yes (Other)
  Sender: FDA-Public Use
  Company Number: CHPA2007US13756

PATIENT
  Age: 6 Year
  Sex: Male

DRUGS (1)
  1. TRIAMINIC FLU COUGH FEVER NO PSE (NCH)(ACETAMINOPHEN (PARACETAMOL), CH [Suspect]
     Indication: INFLUENZA
     Dosage: 2 TSP, QD, ORAL
     Route: 048
     Dates: start: 20071215, end: 20071215

REACTIONS (2)
  - CHEST PAIN [None]
  - SLEEP DISORDER [None]
